FAERS Safety Report 16409892 (Version 1)
Quarter: 2019Q2

REPORT INFORMATION
  Report Type: Spontaneous
  Country: TW (occurrence: TW)
  Receive Date: 20190610
  Receipt Date: 20190610
  Transmission Date: 20190711
  Serious: Yes (Other)
  Sender: FDA-Public Use
  Company Number: TW-009507513-1906TWN000227

PATIENT
  Age: 66 Year
  Sex: Female
  Weight: 64 kg

DRUGS (13)
  1. ASPIRIN. [Concomitant]
     Active Substance: ASPIRIN
     Dosage: 1 DOSAGE FORM, EVERY OTHER DAY (QOD)
  2. GALVUS MET [Concomitant]
     Active Substance: METFORMIN HYDROCHLORIDE\VILDAGLIPTIN
     Dosage: 1 DOSAGE FORM, (500/50 MG), TWICE A DAY (BID)
  3. ZEPATIER [Suspect]
     Active Substance: ELBASVIR\GRAZOPREVIR
     Indication: HEPATITIS C
     Dosage: UNK
     Route: 048
     Dates: start: 20190401
  4. SILYMARIN [Concomitant]
     Active Substance: DIETARY SUPPLEMENT\HERBALS\MILK THISTLE
     Dosage: 150 MG, TWICE A DAY (BID)
  5. PRAMIPEXOLE. [Concomitant]
     Active Substance: PRAMIPEXOLE
     Dosage: 1 DOSAGE FORM (0.375 MG), TWICE A DAY (BID
  6. TRIHEXYPHENIDYL HYDROCHLORIDE. [Concomitant]
     Active Substance: TRIHEXYPHENIDYL HYDROCHLORIDE
     Dosage: 1 MILLIGRAM, TWICE A DAY (BID)
  7. LANSOPRAZOLE. [Concomitant]
     Active Substance: LANSOPRAZOLE
     Dosage: 30 MG, DAILY BEFORE THE MEAL (QDAC)
  8. MADOPAR [Concomitant]
     Active Substance: BENSERAZIDE HYDROCHLORIDE\LEVODOPA
     Dosage: 125MG (0.5 DOSAGE FORM), TWICE A DAY (BID)
  9. BROMAZEPAM [Concomitant]
     Active Substance: BROMAZEPAM
     Dosage: 3 MG, AT NIGH (HS)
  10. NOVOMIX [Concomitant]
     Active Substance: INSULIN ASPART
     Dosage: 24 INTERNATIONAL UNIT, 2 TIMES PER DAY BEFORE MEALS (BIDAC)
  11. PIRACETAM [Concomitant]
     Active Substance: PIRACETAM
     Dosage: 1 DOSAGE FORM, (1200 MG), TWICE A DAY (BID)
  12. CLONAZEPAM. [Concomitant]
     Active Substance: CLONAZEPAM
     Dosage: 1 MG, AT NIGH (HS)
  13. EXFORGE [Concomitant]
     Active Substance: AMLODIPINE BESYLATE\VALSARTAN
     Dosage: 1 DOSAGE FORM,(5/160 MG), DAILY (QD)

REACTIONS (1)
  - Chronic kidney disease [Unknown]

NARRATIVE: CASE EVENT DATE: 20190415
